FAERS Safety Report 8796901 (Version 3)
Quarter: 2013Q2

REPORT INFORMATION
  Report Type: Report from Study
  Country: ES (occurrence: ES)
  Receive Date: 20120920
  Receipt Date: 20130516
  Transmission Date: 20140414
  Serious: Yes (Hospitalization)
  Sender: FDA-Public Use
  Company Number: ES-BRISTOL-MYERS SQUIBB COMPANY-16950552

PATIENT
  Age: 73 Year
  Sex: Female
  Weight: 72 kg

DRUGS (8)
  1. PACLITAXEL [Suspect]
     Indication: OVARIAN CANCER
     Dosage: 20OCT11-12JAN12=85DAY,26JAN12-ONG?LAST DOSE ON 22DEC2011
     Route: 042
     Dates: start: 20111020
  2. CARBOPLATIN [Suspect]
     Indication: OVARIAN CANCER
     Dosage: 20OCT11-12JAN12=85DAYS,27JAN12-ONG,ALSO RECEIVED 500MG?LAST DOSE ON 22DEC2011
     Route: 042
     Dates: start: 20111020
  3. BEVACIZUMAB [Suspect]
     Indication: OVARIAN CANCER
     Dosage: 10NOV11-12JAN12=64DAYS,27JAN12-ONG?LAST DOSE ON 22DEC2011
     Route: 042
     Dates: start: 20111110
  4. METOCLOPRAMIDE [Concomitant]
     Dates: start: 20111024
  5. PARACETAMOL [Concomitant]
     Dosage: 03JUL2012-650MG
     Dates: start: 2011
  6. CAPTOPRIL [Concomitant]
     Dates: start: 200409
  7. IBUPROFEN [Concomitant]
     Dates: start: 2011
  8. ASPIRIN [Concomitant]
     Dates: start: 2009

REACTIONS (1)
  - Performance status decreased [Recovered/Resolved]
